FAERS Safety Report 4296917-1 (Version None)
Quarter: 2004Q1

REPORT INFORMATION
  Report Type: 
  Country: None (occurrence: None)
  Receive Date: 20040213
  Receipt Date: 20040202
  Transmission Date: 20041129
  Serious: Yes (Other)
  Sender: FDA-Public Use
  Company Number: 2004007328

PATIENT
  Sex: Female

DRUGS (6)
  1. ATORVASTATIN CALCIUM [Suspect]
     Indication: HYPERCHOLESTEROLAEMIA
     Dosage: 10 MG (DAILY), ORAL
     Route: 048
     Dates: end: 20040101
  2. KETOTIFEN [Concomitant]
  3. DILTIAZEM HYDROCHLORIDE [Concomitant]
  4. RABEPRAZOLE (RABEPRAZOLE) [Concomitant]
  5. ISOPHANE INSULIN [Concomitant]
  6. INSULIN HUMAN (INSULIN HUMAN) [Concomitant]

REACTIONS (1)
  - MEMORY IMPAIRMENT [None]
